FAERS Safety Report 23250506 (Version 1)
Quarter: 2023Q4

REPORT INFORMATION
  Report Type: Spontaneous
  Country: EU (occurrence: EU)
  Receive Date: 20231201
  Receipt Date: 20231201
  Transmission Date: 20240110
  Serious: Yes (Life-Threatening)
  Sender: FDA-Public Use
  Company Number: None

PATIENT
  Weight: 78 kg

DRUGS (3)
  1. ARTICAINE HYDROCHLORIDE\EPINEPHRINE HYDROCHLORIDE [Suspect]
     Active Substance: ARTICAINE HYDROCHLORIDE\EPINEPHRINE HYDROCHLORIDE
     Indication: Tooth extraction
     Dosage: ULTRACAIN D-S FORTE - 2X OF 3X 40/0,01 MG/ML?DRUG PRESCRIBED BY DOCTOR: YES
     Dates: start: 20231016
  2. LEVOCETIRIZINE [Concomitant]
     Active Substance: LEVOCETIRIZINE
     Dosage: FILMOMHULDE TABLET, 5 MG (MILLIGRAM)
  3. Beclometasone,Formoterol [Concomitant]
     Dosage: AEROSOL, 200/6 ?G/DOSIS (MICROGRAM PER DOSIS)

REACTIONS (8)
  - Pain [Recovered/Resolved]
  - Pharyngeal swelling [Not Recovered/Not Resolved]
  - Swelling face [Not Recovered/Not Resolved]
  - Swollen tongue [Not Recovered/Not Resolved]
  - Urticaria [Not Recovered/Not Resolved]
  - Mouth swelling [Not Recovered/Not Resolved]
  - Lip swelling [Not Recovered/Not Resolved]
  - Hypersensitivity [Recovering/Resolving]

NARRATIVE: CASE EVENT DATE: 20231103
